FAERS Safety Report 19017497 (Version 1)
Quarter: 2021Q1

REPORT INFORMATION
  Report Type: Spontaneous
  Country: US (occurrence: US)
  Receive Date: 20210316
  Receipt Date: 20210316
  Transmission Date: 20210420
  Serious: Yes (Death, Other)
  Sender: FDA-Public Use
  Company Number: None

PATIENT
  Age: 66 Year
  Sex: Male
  Weight: 88 kg

DRUGS (15)
  1. REMDESIVIR. [Suspect]
     Active Substance: REMDESIVIR
     Indication: COVID-19
     Route: 041
     Dates: start: 20210131, end: 20210209
  2. FAMOTIDINE. [Concomitant]
     Active Substance: FAMOTIDINE
  3. NOREPINEPHRINE. [Concomitant]
     Active Substance: NOREPINEPHRINE
  4. VASOPRESSIN. [Concomitant]
     Active Substance: VASOPRESSIN
  5. ERYHTROMYCIN [Concomitant]
  6. ENOXAPARIN [Concomitant]
     Active Substance: ENOXAPARIN
  7. PHENYLEPHRINE [Concomitant]
     Active Substance: PHENYLEPHRINE HYDROCHLORIDE
  8. FENTANYL. [Concomitant]
     Active Substance: FENTANYL
  9. ROCURONIUM [Concomitant]
     Active Substance: ROCURONIUM BROMIDE
  10. MIDAZOLAM. [Concomitant]
     Active Substance: MIDAZOLAM
  11. CEFEPIME [Concomitant]
     Active Substance: CEFEPIME HYDROCHLORIDE
  12. MELATONIN [Concomitant]
     Active Substance: MELATONIN
  13. INSULIN LISPRO [Concomitant]
     Active Substance: INSULIN LISPRO
  14. METHYLPREDNISOLONE. [Concomitant]
     Active Substance: METHYLPREDNISOLONE
  15. PROPOFOL. [Concomitant]
     Active Substance: PROPOFOL

REACTIONS (1)
  - Alanine aminotransferase increased [None]

NARRATIVE: CASE EVENT DATE: 20210211
